FAERS Safety Report 5736593-1 (Version None)
Quarter: 2008Q2

REPORT INFORMATION
  Report Type: 
  Country: None (occurrence: None)
  Receive Date: 20080513
  Receipt Date: 20080505
  Transmission Date: 20081010
  Serious: Yes (Other)
  Sender: FDA-Public Use
  Company Number: US-ASTRAZENECA-2008UW09302

PATIENT
  Age: 48 Year
  Sex: Male
  Weight: 83.9 kg

DRUGS (2)
  1. CRESTOR [Suspect]
     Indication: BLOOD CHOLESTEROL INCREASED
     Route: 048
     Dates: end: 20070101
  2. CRESTOR [Suspect]
     Route: 048
     Dates: start: 20070101, end: 20071001

REACTIONS (1)
  - BLOOD PRESSURE INCREASED [None]
